FAERS Safety Report 16709596 (Version 2)
Quarter: 2019Q3

REPORT INFORMATION
  Report Type: Spontaneous
  Country: CA (occurrence: CA)
  Receive Date: 20190816
  Receipt Date: 20190927
  Transmission Date: 20191004
  Serious: Yes (Other)
  Sender: FDA-Public Use
  Company Number: CA-JNJFOC-20190812108

PATIENT
  Age: 53 Year
  Sex: Male

DRUGS (2)
  1. DARZALEX [Suspect]
     Active Substance: DARATUMUMAB
     Indication: PLASMA CELL MYELOMA
     Dosage: LAST DOSE ON 26-JUN-2019
     Route: 065
     Dates: start: 201811, end: 20190626
  2. DARZALEX [Suspect]
     Active Substance: DARATUMUMAB
     Indication: SARCOMA

REACTIONS (4)
  - Protein total decreased [Unknown]
  - Plasma cell myeloma [Unknown]
  - Hypoalbuminaemia [Recovered/Resolved]
  - Drug ineffective for unapproved indication [Unknown]

NARRATIVE: CASE EVENT DATE: 20190705
